FAERS Safety Report 4806237-1 (Version None)
Quarter: 2005Q4

REPORT INFORMATION
  Report Type: 
  Country: None (occurrence: None)
  Receive Date: 20051019
  Receipt Date: 20050929
  Transmission Date: 20060501
  Serious: Yes (Other)
  Sender: FDA-Public Use
  Company Number: US_0510122704

PATIENT
  Age: 34 Week
  Sex: Female

DRUGS (1)
  1. EVISTA [Suspect]

REACTIONS (3)
  - ABDOMINAL DISCOMFORT [None]
  - BONE DENSITY DECREASED [None]
  - HIP FRACTURE [None]
